FAERS Safety Report 6645085-7 (Version None)
Quarter: 2010Q1

REPORT INFORMATION
  Report Type: 
  Country: None (occurrence: None)
  Receive Date: 20100322
  Receipt Date: 20100312
  Transmission Date: 20100710
  Serious: Yes (Hospitalization)
  Sender: FDA-Public Use
  Company Number: AU-ROCHE-644160

PATIENT
  Sex: Male

DRUGS (3)
  1. CAPECITABINE [Suspect]
     Indication: COLON CANCER
     Route: 048
     Dates: start: 20090707
  2. BEVACIZUMAB [Suspect]
     Indication: COLON CANCER
     Dosage: DRUG PERMANENTLY DISCONTINUED. INFUSION ONCE EVERY THREE THREE WEEKS.
     Route: 042
     Dates: start: 20090707
  3. HEPARIN [Suspect]
     Route: 058
     Dates: start: 20090803

REACTIONS (5)
  - ABDOMINAL PAIN [None]
  - ANASTOMOTIC LEAK [None]
  - ANASTOMOTIC STENOSIS [None]
  - GASTROINTESTINAL PERFORATION [None]
  - SEPSIS [None]
